FAERS Safety Report 10043280 (Version 1)
Quarter: 2014Q1

REPORT INFORMATION
  Report Type: Spontaneous
  Country: US (occurrence: US)
  Receive Date: 20140328
  Receipt Date: 20140328
  Transmission Date: 20141002
  Serious: No
  Sender: FDA-Public Use
  Company Number: US-US-EMD SERONO, INC.-7277603

PATIENT
  Sex: Female

DRUGS (3)
  1. REBIF [Suspect]
     Indication: MULTIPLE SCLEROSIS
     Route: 058
     Dates: start: 201402
  2. REBIF [Suspect]
     Route: 058
     Dates: start: 2014
  3. CLONAZEPAM [Concomitant]
     Indication: ANXIETY

REACTIONS (4)
  - Ocular rosacea [Not Recovered/Not Resolved]
  - Erythema [Not Recovered/Not Resolved]
  - Injection site haemorrhage [Recovered/Resolved]
  - Injection site pain [Recovered/Resolved]
